FAERS Safety Report 4798293-4 (Version None)
Quarter: 2005Q4

REPORT INFORMATION
  Report Type: 
  Country: None (occurrence: None)
  Receive Date: 20051006
  Receipt Date: 20051006
  Transmission Date: 20060501
  Serious: Yes (Life-Threatening, Hospitalization)
  Sender: FDA-Public Use
  Company Number: None

PATIENT
  Age: 72 Year
  Sex: Male
  Weight: 90 kg

DRUGS (1)
  1. AMIKACIN [Suspect]
     Indication: BACTERAEMIA
     Dosage: 700MG X 1  (THERAPY DATES: 2/4 - 2/7)

REACTIONS (1)
  - BLOOD CREATININE INCREASED [None]
